FAERS Safety Report 9215455 (Version 5)
Quarter: 2016Q3

REPORT INFORMATION
  Report Type: Spontaneous
  Country: JP (occurrence: JP)
  Receive Date: 20130405
  Receipt Date: 20160812
  Transmission Date: 20161109
  Serious: Yes (Death, Life-Threatening, Hospitalization, Other)
  Sender: FDA-Public Use
  Company Number: JP-009507513-1304JPN001639

PATIENT
  Age: 58 Year
  Sex: Female
  Weight: 54 kg

DRUGS (5)
  1. SINGULAIR [Concomitant]
     Active Substance: MONTELUKAST SODIUM
     Indication: ASTHMA
     Dosage: 10 MG, BEFORE SLEEP
     Route: 048
     Dates: start: 20130225, end: 20130308
  2. TELAVIC [Suspect]
     Active Substance: TELAPREVIR
     Indication: CHRONIC HEPATITIS C
     Dosage: TOTAL DAILY DOSE 1500 MG (3 TIMES/DAY)
     Route: 048
     Dates: start: 20130122, end: 20130309
  3. REBETOL [Suspect]
     Active Substance: RIBAVIRIN
     Indication: CHRONIC HEPATITIS C
     Dosage: 400 MG, DAY (200 MG 2 TIMES A DAY)
     Route: 048
     Dates: start: 20130122, end: 20130309
  4. PREDONINE [Concomitant]
     Active Substance: PREDNISOLONE\PREDNISOLONE ACETATE\PREDNISOLONE SODIUM SUCCINATE
     Indication: ASTHMA
     Dosage: 20 MG,AFTER THE BREAKFAST
     Route: 048
     Dates: start: 20130225, end: 20130301
  5. PEGINTRON [Suspect]
     Active Substance: PEGINTERFERON ALFA-2B
     Indication: CHRONIC HEPATITIS C
     Dosage: 60 MCG/WEEK
     Route: 058
     Dates: start: 20130122, end: 20130304

REACTIONS (2)
  - Septic shock [Fatal]
  - Necrotising fasciitis [Not Recovered/Not Resolved]

NARRATIVE: CASE EVENT DATE: 20130309
